FAERS Safety Report 14247766 (Version 1)
Quarter: 2017Q4

REPORT INFORMATION
  Report Type: Spontaneous
  Country: TR (occurrence: TR)
  Receive Date: 20171204
  Receipt Date: 20171204
  Transmission Date: 20180321
  Serious: Yes (Death)
  Sender: FDA-Public Use
  Company Number: TR-AMGEN-TURNI2017170997

PATIENT
  Age: 47 Year
  Sex: Male
  Weight: 63 kg

DRUGS (4)
  1. MIMPARA [Suspect]
     Active Substance: CINACALCET HYDROCHLORIDE
     Indication: CONGENITAL CYSTIC KIDNEY DISEASE
     Dosage: 30 MG, QD
     Route: 048
     Dates: start: 20160104, end: 20171026
  2. DESAL [Concomitant]
     Active Substance: FUROSEMIDE
     Indication: CONGENITAL CYSTIC KIDNEY DISEASE
     Dosage: 40 MG, BID
     Route: 048
     Dates: start: 20160104, end: 20171026
  3. NOOTROPIL [Concomitant]
     Active Substance: PIRACETAM
     Indication: NERVOUS SYSTEM DISORDER
     Dosage: 800 MG, BID
     Route: 048
     Dates: start: 20160104, end: 20171026
  4. ECOPIRIN [Concomitant]
     Active Substance: ASPIRIN
     Indication: CONGENITAL CYSTIC KIDNEY DISEASE
     Dosage: 100 MG, QD
     Route: 048
     Dates: start: 20160104, end: 20171026

REACTIONS (2)
  - Off label use [Unknown]
  - Myocardial infarction [Fatal]

NARRATIVE: CASE EVENT DATE: 20160104
